FAERS Safety Report 11460688 (Version 2)
Quarter: 2015Q3

REPORT INFORMATION
  Report Type: Spontaneous
  Country: US (occurrence: US)
  Receive Date: 20150904
  Receipt Date: 20150924
  Transmission Date: 20151125
  Serious: No
  Sender: FDA-Public Use
  Company Number: PHEH2015US007868

PATIENT
  Age: 49 Year
  Sex: Male
  Weight: 125 kg

DRUGS (5)
  1. DICLOFENAC [Suspect]
     Active Substance: DICLOFENAC
     Indication: PRODUCT USED FOR UNKNOWN INDICATION
     Dosage: 1 DF, BID (75MG)
     Route: 048
     Dates: start: 2012, end: 2014
  2. LYRICA [Suspect]
     Active Substance: PREGABALIN
     Indication: NEUROPATHY PERIPHERAL
     Dosage: 1 DF (150 MG), TID
     Route: 048
     Dates: start: 2012, end: 20150305
  3. IBUPROFEN. [Suspect]
     Active Substance: IBUPROFEN
     Indication: PAIN
     Dosage: 9 DF, QD
     Route: 048
     Dates: start: 2002, end: 2012
  4. LYRICA [Suspect]
     Active Substance: PREGABALIN
     Indication: FIBROMYALGIA
  5. GABAPENTIN. [Suspect]
     Active Substance: GABAPENTIN
     Indication: NEUROPATHY PERIPHERAL
     Dosage: 1 DF (600 MG), TID
     Route: 048
     Dates: start: 2011

REACTIONS (8)
  - Thrombosis [Unknown]
  - Thermal burn [Unknown]
  - Localised infection [Recovered/Resolved]
  - Platelet count decreased [Unknown]
  - Overdose [Unknown]
  - Haemorrhage [Unknown]
  - Oedema [Unknown]
  - Incorrect drug administration duration [Unknown]

NARRATIVE: CASE EVENT DATE: 2012
